FAERS Safety Report 8136735-7 (Version None)
Quarter: 2012Q1

REPORT INFORMATION
  Report Type: 
  Country: None (occurrence: None)
  Receive Date: 20120214
  Receipt Date: 20120209
  Transmission Date: 20120608
  Serious: Yes (Other)
  Sender: FDA-Public Use
  Company Number: CL-PFIZER INC-2012035747

PATIENT
  Sex: Male

DRUGS (2)
  1. AZULFIDINE [Suspect]
     Indication: COLITIS ULCERATIVE
     Dosage: 500 MG,
     Dates: start: 20120101
  2. BERSEN [Concomitant]

REACTIONS (3)
  - DYSSTASIA [None]
  - MUSCLE SPASMS [None]
  - PAIN IN EXTREMITY [None]
